FAERS Safety Report 5808806-9 (Version None)
Quarter: 2008Q3

REPORT INFORMATION
  Report Type: 
  Country: None (occurrence: None)
  Receive Date: 20080714
  Receipt Date: 20080702
  Transmission Date: 20090109
  Serious: Yes (Other)
  Sender: FDA-Public Use
  Company Number: B0361060A

PATIENT
  Age: 28 Year
  Sex: Female

DRUGS (11)
  1. PAROXETINE HCL [Suspect]
     Dates: start: 19950101
  2. ACETAMINOPHEN [Suspect]
     Dosage: 25TAB PER DAY
     Dates: start: 20040913
  3. ALCOHOL [Suspect]
  4. PENICILLIN [Suspect]
     Dosage: 10TAB PER DAY
     Dates: start: 20040913
  5. ASPIRIN [Suspect]
  6. NEUROFEN [Suspect]
  7. PROPRANOLOL [Suspect]
  8. FLUOXETINE [Suspect]
  9. CITALOPRAM HYDROBROMIDE [Suspect]
  10. PROZAC [Concomitant]
     Dates: start: 19960715
  11. LORAZEPAM [Concomitant]
     Dates: start: 20021007

REACTIONS (16)
  - AGITATION [None]
  - BALANCE DISORDER [None]
  - DISTURBANCE IN ATTENTION [None]
  - DIZZINESS [None]
  - DRUG WITHDRAWAL SYNDROME [None]
  - FATIGUE [None]
  - HEADACHE [None]
  - HYPERHIDROSIS [None]
  - INSOMNIA [None]
  - INTENTIONAL OVERDOSE [None]
  - INTENTIONAL SELF-INJURY [None]
  - JUDGEMENT IMPAIRED [None]
  - NAUSEA [None]
  - NIGHTMARE [None]
  - TREMOR [None]
  - VOMITING [None]
